FAERS Safety Report 5870361-5 (Version None)
Quarter: 2008Q3

REPORT INFORMATION
  Report Type: 
  Country: None (occurrence: None)
  Receive Date: 20080904
  Receipt Date: 20071015
  Transmission Date: 20090109
  Serious: No
  Sender: FDA-Public Use
  Company Number: US-BRISTOL-MYERS SQUIBB COMPANY-13942594

PATIENT
  Age: 62 Year
  Sex: Male
  Weight: 140 kg

DRUGS (11)
  1. DEFINITY [Suspect]
     Dates: start: 20071011
  2. LIBRAX [Concomitant]
  3. ASPIRIN [Concomitant]
  4. NITROGLYCERIN [Concomitant]
     Route: 060
  5. TOPROL-XL [Concomitant]
  6. CRESTOR [Concomitant]
  7. AMARYL [Concomitant]
  8. AVAPRO [Concomitant]
  9. LISINOPRIL [Concomitant]
  10. LANTUS [Concomitant]
  11. LASIX [Concomitant]

REACTIONS (1)
  - ROSACEA [None]
